FAERS Safety Report 24329037 (Version 2)
Quarter: 2024Q4

REPORT INFORMATION
  Report Type: Spontaneous
  Country: FR (occurrence: FR)
  Receive Date: 20240917
  Receipt Date: 20241025
  Transmission Date: 20250115
  Serious: Yes (Other)
  Sender: MYLAN
  Company Number: None

PATIENT
  Age: 27 Year
  Sex: Male

DRUGS (1)
  1. PREGABALIN [Suspect]
     Active Substance: PREGABALIN
     Indication: Product used for unknown indication
     Dosage: 600 MILLIGRAM, QD (600MG/DAY)
     Route: 065
     Dates: start: 2024

REACTIONS (3)
  - Drug use disorder [Not Recovered/Not Resolved]
  - Drug dependence [Unknown]
  - Behaviour disorder [Recovered/Resolved]
